FAERS Safety Report 7509237-6 (Version None)
Quarter: 2011Q2

REPORT INFORMATION
  Report Type: 
  Country: None (occurrence: None)
  Receive Date: 20110527
  Receipt Date: 20110518
  Transmission Date: 20111010
  Serious: Yes (Hospitalization, Disabling)
  Sender: FDA-Public Use
  Company Number: FR-ROCHE-730157

PATIENT
  Sex: Female
  Weight: 49 kg

DRUGS (18)
  1. BEVACIZUMAB [Suspect]
     Route: 042
     Dates: start: 20100809, end: 20100810
  2. OXYCONTIN [Concomitant]
     Dates: start: 20100120, end: 20100808
  3. BEVACIZUMAB [Suspect]
     Dosage: FORM: INFUSION
     Route: 042
     Dates: start: 20090608, end: 20090921
  4. XANAX [Concomitant]
     Dosage: DRUG: XANAX 0.25, FREQUENCY: PRN
     Dates: start: 20100101
  5. IRINOTECAN HYDROCHLORIDE [Concomitant]
     Route: 042
     Dates: start: 20090608, end: 20090921
  6. CAPECITABINE [Suspect]
     Dosage: END DATE: 29 AUG 2010
     Route: 048
     Dates: start: 20100809, end: 20100823
  7. IMODIUM [Concomitant]
  8. FLUOROURACIL [Concomitant]
     Route: 042
     Dates: start: 20090608, end: 20090921
  9. BEVACIZUMAB [Suspect]
     Route: 042
  10. OXALIPLATIN [Suspect]
     Dosage: DOSAGE FORM: 200 MG., FORM: INFUSION
     Route: 042
     Dates: start: 20100120, end: 20100518
  11. OXALIPLATIN [Suspect]
     Route: 042
     Dates: start: 20100809, end: 20100809
  12. BEVACIZUMAB [Suspect]
     Dosage: DOSAGE FORM: 400MG; DOSAGE ALSO REPORTED AS 7.5 MG/KG
     Route: 042
     Dates: start: 20100120, end: 20100719
  13. PAROXETINE HCL [Concomitant]
     Dates: start: 20100101
  14. LEUCOVORIN CALCIUM [Concomitant]
     Route: 042
     Dates: start: 20090608, end: 20090921
  15. CAPECITABINE [Suspect]
     Dosage: FREQUENCY: 14 DAYS EVERY 3 WEEKLY.
     Route: 048
  16. OXALIPLATIN [Suspect]
     Route: 042
  17. ACETAMINOPHEN [Concomitant]
     Dates: start: 20091125, end: 20100808
  18. CAPECITABINE [Suspect]
     Dosage: FREQUENCY: 14 DAYS EVERY 3 WEEKS
     Route: 048
     Dates: start: 20100120, end: 20100518

REACTIONS (2)
  - CEREBROVASCULAR ACCIDENT [None]
  - CEREBRAL ISCHAEMIA [None]
